FAERS Safety Report 5853716-4 (Version None)
Quarter: 2008Q3

REPORT INFORMATION
  Report Type: 
  Country: None (occurrence: None)
  Receive Date: 20080822
  Receipt Date: 20080814
  Transmission Date: 20090109
  Serious: Yes (Other)
  Sender: FDA-Public Use
  Company Number: FR-BAYER-200824515GPV

PATIENT
  Age: 61 Year
  Weight: 73 kg

DRUGS (2)
  1. NEXAVAR [Suspect]
     Indication: RENAL CELL CARCINOMA
     Route: 048
     Dates: end: 20080208
  2. NEXAVAR [Suspect]
     Route: 048
     Dates: start: 20080526

REACTIONS (4)
  - ABDOMINAL ABSCESS [None]
  - ACUTE PULMONARY OEDEMA [None]
  - DIVERTICULAR FISTULA [None]
  - DIVERTICULAR PERFORATION [None]
